FAERS Safety Report 12770491 (Version 1)
Quarter: 2016Q3

REPORT INFORMATION
  Report Type: Spontaneous
  Country: US (occurrence: US)
  Receive Date: 20160921
  Receipt Date: 20160921
  Transmission Date: 20161109
  Serious: Yes (Death, Hospitalization, Other)
  Sender: FDA-Public Use
  Company Number: None

PATIENT
  Age: 66 Year
  Sex: Male
  Weight: 119.8 kg

DRUGS (1)
  1. ISOVUE [Suspect]
     Active Substance: IOPAMIDOL
     Indication: SCAN WITH CONTRAST
     Dates: start: 20151208

REACTIONS (8)
  - Cardiac arrest [None]
  - Hyperlactacidaemia [None]
  - Flushing [None]
  - Respiratory distress [None]
  - Burning sensation [None]
  - Acidosis [None]
  - Multiple organ dysfunction syndrome [None]
  - Hypotension [None]

NARRATIVE: CASE EVENT DATE: 20151208
